FAERS Safety Report 11272187 (Version 1)
Quarter: 2015Q3

REPORT INFORMATION
  Report Type: Spontaneous
  Country: US (occurrence: None)
  Receive Date: 20150713
  Receipt Date: 20150713
  Transmission Date: 20151125
  Serious: No
  Sender: FDA-Public Use
  Company Number: None

PATIENT
  Age: 37 Year
  Sex: Female
  Weight: 72.58 kg

DRUGS (4)
  1. HONEST SUNSCREEN BROAD SPECTRUM SPF 30 [Suspect]
     Active Substance: ZINC OXIDE
     Indication: THERAPEUTIC SKIN CARE TOPICAL
     Dates: start: 20150704, end: 20150704
  2. HONEST SUNSCREEN BROAD SPECTRUM SPF 30 [Suspect]
     Active Substance: ZINC OXIDE
     Indication: SUNBURN
     Dates: start: 20150704, end: 20150704
  3. HONEST SUNSCREEN BROAD SPECTRUM SPF 30 [Suspect]
     Active Substance: ZINC OXIDE
     Indication: PROPHYLAXIS
     Dates: start: 20150704, end: 20150704
  4. MULTI VITAMIN [Concomitant]
     Active Substance: VITAMINS

REACTIONS (2)
  - Sunburn [None]
  - Drug ineffective [None]

NARRATIVE: CASE EVENT DATE: 20150704
